FAERS Safety Report 8119435-9 (Version None)
Quarter: 2012Q1

REPORT INFORMATION
  Report Type: 
  Country: None (occurrence: None)
  Receive Date: 20120207
  Receipt Date: 20120202
  Transmission Date: 20120608
  Serious: Yes (Life-Threatening, Hospitalization, Other)
  Sender: FDA-Public Use
  Company Number: CL-ABBOTT-11P-034-0884917-00

PATIENT
  Sex: Male
  Weight: 86 kg

DRUGS (3)
  1. HUMIRA [Suspect]
     Indication: JUVENILE ARTHRITIS
     Route: 058
     Dates: start: 20100908, end: 20111201
  2. CORTICOSTEROIDS [Concomitant]
     Indication: JUVENILE ARTHRITIS
     Route: 048
  3. METHOTREXATE [Concomitant]
     Indication: JUVENILE ARTHRITIS
     Route: 048

REACTIONS (3)
  - PRIMITIVE NEUROECTODERMAL TUMOUR [None]
  - VARICELLA [None]
  - EWING'S SARCOMA [None]
